FAERS Safety Report 10983154 (Version 1)
Quarter: 2015Q2

REPORT INFORMATION
  Report Type: Report from Study
  Country: IT (occurrence: IT)
  Receive Date: 20150403
  Receipt Date: 20150403
  Transmission Date: 20150821
  Serious: Yes (Other)
  Sender: FDA-Public Use
  Company Number: IT-SA-2015SA039646

PATIENT
  Age: 42 Year
  Sex: Male

DRUGS (2)
  1. CEREZYME [Suspect]
     Active Substance: IMIGLUCERASE
     Route: 042
     Dates: start: 20140221
  2. MINIAS [Concomitant]
     Active Substance: LORMETAZEPAM

REACTIONS (2)
  - Agitation [Recovered/Resolved with Sequelae]
  - Daydreaming [Unknown]

NARRATIVE: CASE EVENT DATE: 201503
